FAERS Safety Report 15572917 (Version 2)
Quarter: 2019Q1

REPORT INFORMATION
  Report Type: Report from Study
  Country: IT (occurrence: IT)
  Receive Date: 20181031
  Receipt Date: 20190118
  Transmission Date: 20190417
  Serious: Yes (Hospitalization, Other)
  Sender: FDA-Public Use
  Company Number: IT-BRISTOL-MYERS SQUIBB COMPANY-BMS-2018-101084

PATIENT
  Age: 68 Year
  Sex: Male

DRUGS (1)
  1. WARFARIN SODIUM. [Suspect]
     Active Substance: WARFARIN SODIUM
     Indication: ATRIAL FIBRILLATION
     Dosage: 18.75 MG, 1 WEEK
     Route: 048
     Dates: start: 20161015, end: 20170610

REACTIONS (2)
  - Traumatic intracranial haemorrhage [Recovering/Resolving]
  - Drop attacks [Recovering/Resolving]

NARRATIVE: CASE EVENT DATE: 20170610
